FAERS Safety Report 8397743-4 (Version None)
Quarter: 2012Q2

REPORT INFORMATION
  Report Type: 
  Country: None (occurrence: None)
  Receive Date: 20120529
  Receipt Date: 20120514
  Transmission Date: 20120825
  Serious: No
  Sender: FDA-Public Use
  Company Number: 2012SP021088

PATIENT
  Age: 64 Year
  Sex: Female

DRUGS (3)
  1. LACTULOSE [Concomitant]
  2. SAPHRIS [Suspect]
     Indication: PRODUCT USED FOR UNKNOWN INDICATION
     Dosage: SL
     Route: 060
     Dates: start: 20100101
  3. MIRALAX [Concomitant]

REACTIONS (3)
  - HEART RATE INCREASED [None]
  - SWOLLEN TONGUE [None]
  - DYSPNOEA [None]
